FAERS Safety Report 5152888-7 (Version None)
Quarter: 2006Q4

REPORT INFORMATION
  Report Type: 
  Country: None (occurrence: None)
  Receive Date: 20061117
  Receipt Date: 20061106
  Transmission Date: 20070319
  Serious: Yes (Disabling)
  Sender: FDA-Public Use
  Company Number: GB-JNJFOC-20061103266

PATIENT
  Age: 62 Year
  Sex: Female
  Weight: 90 kg

DRUGS (12)
  1. TRAMADOL HCL [Suspect]
     Indication: PAIN
     Dosage: 1 DF 3 TIMES A DAY
     Route: 048
  2. TAMOXIFEN CITRATE [Suspect]
     Indication: BREAST CANCER
     Route: 048
  3. CLONIDINE [Concomitant]
     Route: 048
  4. DICLOFENAC SODIUM [Concomitant]
     Route: 065
  5. DILTIAZEM HCL [Concomitant]
     Route: 048
  6. ISOSORBIDE MONONITRATE [Concomitant]
     Route: 048
  7. METFORMIN [Concomitant]
     Route: 065
  8. NOVOMIX [Concomitant]
     Route: 065
  9. OMEPRAZOLE [Concomitant]
     Route: 065
  10. ACETAMINOPHEN [Concomitant]
     Route: 065
  11. RAMIPRIL [Concomitant]
     Route: 048
  12. SIMVASTATIN [Concomitant]
     Route: 065

REACTIONS (2)
  - PAIN IN EXTREMITY [None]
  - RASH ERYTHEMATOUS [None]
